FAERS Safety Report 6358991-8 (Version None)
Quarter: 2009Q3

REPORT INFORMATION
  Report Type: 
  Country: None (occurrence: None)
  Receive Date: 20090914
  Receipt Date: 20090901
  Transmission Date: 20100115
  Serious: Yes (Other)
  Sender: FDA-Public Use
  Company Number: 2009S1000258

PATIENT
  Age: 63 Year
  Sex: Male

DRUGS (2)
  1. ACITRETIN [Suspect]
     Indication: DRUG USE FOR UNKNOWN INDICATION
     Dosage: 10 MG; QD; PO
     Route: 048
     Dates: start: 20080901, end: 20090801
  2. SERC [Concomitant]

REACTIONS (3)
  - ANAEMIA [None]
  - MYELODYSPLASTIC SYNDROME [None]
  - SUDDEN ONSET OF SLEEP [None]
